FAERS Safety Report 16810963 (Version 1)
Quarter: 2019Q3

REPORT INFORMATION
  Report Type: Spontaneous
  Country: CA (occurrence: CA)
  Receive Date: 20190916
  Receipt Date: 20190916
  Transmission Date: 20191005
  Serious: Yes (Other)
  Sender: FDA-Public Use
  Company Number: CA-MYLANLABS-2019M1086682

PATIENT
  Age: 69 Year
  Sex: Male

DRUGS (6)
  1. AMIODARONE [Suspect]
     Active Substance: AMIODARONE
     Indication: CARDIOMYOPATHY
     Route: 065
  2. AMIODARONE [Suspect]
     Active Substance: AMIODARONE
     Indication: VENTRICULAR EXTRASYSTOLES
  3. PROPAFENONE. [Suspect]
     Active Substance: PROPAFENONE
     Indication: CARDIOMYOPATHY
     Route: 065
  4. SOTALOL. [Suspect]
     Active Substance: SOTALOL
     Indication: VENTRICULAR EXTRASYSTOLES
  5. PROPAFENONE. [Suspect]
     Active Substance: PROPAFENONE
     Indication: VENTRICULAR EXTRASYSTOLES
  6. SOTALOL. [Suspect]
     Active Substance: SOTALOL
     Indication: CARDIOMYOPATHY
     Route: 065

REACTIONS (1)
  - Treatment failure [Unknown]
